FAERS Safety Report 18260957 (Version 2)
Quarter: 2021Q4

REPORT INFORMATION
  Report Type: Spontaneous
  Country: FR (occurrence: FR)
  Receive Date: 20200914
  Receipt Date: 20211107
  Transmission Date: 20220303
  Serious: Yes (Life-Threatening, Other)
  Sender: FDA-Public Use
  Company Number: FR-AFSSAPS-NC20201120

PATIENT
  Age: 40 Year
  Sex: Male
  Weight: 75 kg

DRUGS (4)
  1. ACETAMINOPHEN [Suspect]
     Active Substance: ACETAMINOPHEN
     Indication: Poisoning deliberate
     Dosage: 8 GRAM, 1 TOTAL
     Route: 048
     Dates: start: 20200531, end: 20200531
  2. CLOMIPRAMINE HYDROCHLORIDE [Suspect]
     Active Substance: CLOMIPRAMINE HYDROCHLORIDE
     Indication: Poisoning deliberate
     Dosage: 75 MILLIGRAM (20 CP DE 75 MG)
     Route: 048
     Dates: start: 20200531, end: 20200531
  3. NITRAZEPAM [Suspect]
     Active Substance: NITRAZEPAM
     Indication: Poisoning deliberate
     Dosage: UNK
     Route: 048
     Dates: start: 20200531, end: 20200531
  4. TRIMEPRAZINE [Suspect]
     Active Substance: TRIMEPRAZINE
     Indication: Poisoning deliberate
     Dosage: 30 MILLILITER, 1 TOTAL
     Route: 048
     Dates: start: 20200531, end: 20200531

REACTIONS (2)
  - Oxygen saturation decreased [Recovered/Resolved]
  - Coma [Recovered/Resolved]

NARRATIVE: CASE EVENT DATE: 20200531
